FAERS Safety Report 8033555-9 (Version None)
Quarter: 2012Q1

REPORT INFORMATION
  Report Type: 
  Country: None (occurrence: None)
  Receive Date: 20120110
  Receipt Date: 20120103
  Transmission Date: 20120608
  Serious: Yes (Other)
  Sender: FDA-Public Use
  Company Number: CA-ELI_LILLY_AND_COMPANY-CA201201001427

PATIENT

DRUGS (2)
  1. CISPLATIN [Concomitant]
     Dosage: 75 MG/M2, ON DAY ONE OF CYCLE
  2. GEMCITABINE HYDROCHLORIDE [Suspect]
     Indication: NON-SMALL CELL LUNG CANCER
     Dosage: 1250 MG/M2, DAY ONE AND EIGHT OF CYCLE
     Route: 042

REACTIONS (1)
  - THROMBOTIC THROMBOCYTOPENIC PURPURA [None]
